FAERS Safety Report 24439399 (Version 2)
Quarter: 2025Q2

REPORT INFORMATION
  Report Type: Spontaneous
  Country: US (occurrence: US)
  Receive Date: 20241015
  Receipt Date: 20250514
  Transmission Date: 20250716
  Serious: Yes (Hospitalization)
  Sender: ROCHE
  Company Number: US-ROCHE-10000101163

PATIENT
  Age: 4 Year
  Sex: Male

DRUGS (2)
  1. HEMLIBRA [Suspect]
     Active Substance: EMICIZUMAB-KXWH
     Indication: Factor XI deficiency
     Route: 058
     Dates: start: 202203
  2. HEMLIBRA [Suspect]
     Active Substance: EMICIZUMAB-KXWH
     Dosage: STRENGTH: 60MG/0.4ML
     Route: 058
     Dates: start: 202203

REACTIONS (4)
  - Mouth haemorrhage [Unknown]
  - Tongue haemorrhage [Unknown]
  - Injury [Unknown]
  - Tongue biting [Unknown]

NARRATIVE: CASE EVENT DATE: 20240929
